FAERS Safety Report 4827896-3 (Version None)
Quarter: 2005Q4

REPORT INFORMATION
  Report Type: 
  Country: None (occurrence: None)
  Receive Date: 20051110
  Receipt Date: 20051028
  Transmission Date: 20060501
  Serious: Yes (Hospitalization, Other)
  Sender: FDA-Public Use
  Company Number: USA0510112153

PATIENT
  Age: 78 Year
  Sex: Male

DRUGS (8)
  1. HUMATROPE [Suspect]
     Indication: PITUITARY TUMOUR REMOVAL
     Dates: start: 20030101
  2. SIMVASTATIN [Concomitant]
  3. LISINOPRIL [Concomitant]
  4. TORSEMIDE [Concomitant]
  5. ASPIRIN [Concomitant]
  6. POTASSIUM [Concomitant]
  7. MULTI-VITAMIN [Concomitant]
  8. VERAPAMIL [Concomitant]

REACTIONS (6)
  - ANKLE FRACTURE [None]
  - LEG AMPUTATION [None]
  - PHARMACEUTICAL PRODUCT COMPLAINT [None]
  - ROAD TRAFFIC ACCIDENT [None]
  - SCRATCH [None]
  - TIBIA FRACTURE [None]
